FAERS Safety Report 8885943 (Version 43)
Quarter: 2024Q2

REPORT INFORMATION
  Report Type: Spontaneous
  Country: CA (occurrence: CA)
  Receive Date: 20121105
  Receipt Date: 20240517
  Transmission Date: 20240716
  Serious: Yes (Hospitalization, Other)
  Sender: FDA-Public Use
  Company Number: CA-ROCHE-1151633

PATIENT
  Age: 36 Year
  Sex: Female

DRUGS (44)
  1. XOLAIR [Suspect]
     Active Substance: OMALIZUMAB
     Indication: Asthma
     Route: 058
     Dates: start: 20090422
  2. XOLAIR [Suspect]
     Active Substance: OMALIZUMAB
     Route: 058
     Dates: start: 20121022
  3. XOLAIR [Suspect]
     Active Substance: OMALIZUMAB
     Route: 058
     Dates: start: 20121203
  4. XOLAIR [Suspect]
     Active Substance: OMALIZUMAB
     Route: 058
     Dates: start: 20130114
  5. XOLAIR [Suspect]
     Active Substance: OMALIZUMAB
     Route: 058
     Dates: start: 20130128
  6. XOLAIR [Suspect]
     Active Substance: OMALIZUMAB
     Route: 058
     Dates: start: 20130211
  7. XOLAIR [Suspect]
     Active Substance: OMALIZUMAB
     Route: 058
     Dates: start: 20130422
  8. XOLAIR [Suspect]
     Active Substance: OMALIZUMAB
     Route: 058
     Dates: start: 20130909
  9. XOLAIR [Suspect]
     Active Substance: OMALIZUMAB
     Route: 058
     Dates: start: 20131104
  10. XOLAIR [Suspect]
     Active Substance: OMALIZUMAB
     Route: 058
     Dates: start: 20140422
  11. XOLAIR [Suspect]
     Active Substance: OMALIZUMAB
     Route: 058
     Dates: start: 20140505
  12. XOLAIR [Suspect]
     Active Substance: OMALIZUMAB
     Route: 058
     Dates: start: 20140602
  13. XOLAIR [Suspect]
     Active Substance: OMALIZUMAB
     Route: 058
     Dates: start: 20141121
  14. XOLAIR [Suspect]
     Active Substance: OMALIZUMAB
     Route: 058
     Dates: start: 20141208
  15. XOLAIR [Suspect]
     Active Substance: OMALIZUMAB
     Route: 058
     Dates: start: 20150202
  16. XOLAIR [Suspect]
     Active Substance: OMALIZUMAB
     Route: 058
     Dates: start: 20150817
  17. XOLAIR [Suspect]
     Active Substance: OMALIZUMAB
     Route: 058
     Dates: start: 20160718
  18. XOLAIR [Suspect]
     Active Substance: OMALIZUMAB
     Route: 058
     Dates: start: 20160815
  19. XOLAIR [Suspect]
     Active Substance: OMALIZUMAB
     Route: 058
     Dates: start: 20161128
  20. XOLAIR [Suspect]
     Active Substance: OMALIZUMAB
     Route: 058
     Dates: start: 20170109, end: 20170109
  21. XOLAIR [Suspect]
     Active Substance: OMALIZUMAB
     Route: 058
     Dates: start: 20170123
  22. XOLAIR [Suspect]
     Active Substance: OMALIZUMAB
     Route: 058
     Dates: start: 20170220
  23. XOLAIR [Suspect]
     Active Substance: OMALIZUMAB
     Route: 058
     Dates: start: 20170626
  24. XOLAIR [Suspect]
     Active Substance: OMALIZUMAB
     Route: 058
     Dates: start: 20170707
  25. XOLAIR [Suspect]
     Active Substance: OMALIZUMAB
     Route: 058
     Dates: start: 20170828
  26. XOLAIR [Suspect]
     Active Substance: OMALIZUMAB
     Route: 058
     Dates: start: 20170925
  27. XOLAIR [Suspect]
     Active Substance: OMALIZUMAB
     Route: 058
     Dates: start: 20171121
  28. XOLAIR [Suspect]
     Active Substance: OMALIZUMAB
     Route: 058
     Dates: start: 20180117
  29. XOLAIR [Suspect]
     Active Substance: OMALIZUMAB
     Route: 058
     Dates: start: 20180411
  30. XOLAIR [Suspect]
     Active Substance: OMALIZUMAB
     Route: 058
     Dates: start: 20180509
  31. CYCLOSPORINE [Suspect]
     Active Substance: CYCLOSPORINE
     Indication: Product used for unknown indication
     Route: 065
  32. REVIA [Suspect]
     Active Substance: NALTREXONE HYDROCHLORIDE
     Indication: Pruritus
     Route: 065
     Dates: start: 2017
  33. CORTISONE [Suspect]
     Active Substance: CORTISONE
     Indication: Pruritus
     Route: 065
  34. CORTISONE [Suspect]
     Active Substance: CORTISONE
     Route: 065
  35. CORTISONE [Suspect]
     Active Substance: CORTISONE
     Route: 048
  36. CORTISONE [Suspect]
     Active Substance: CORTISONE
     Route: 065
     Dates: start: 20140204
  37. CORTISONE [Suspect]
     Active Substance: CORTISONE
     Route: 065
     Dates: start: 20140204
  38. SYMBICORT [Concomitant]
     Active Substance: BUDESONIDE\FORMOTEROL FUMARATE DIHYDRATE
     Indication: Nasopharyngitis
     Dosage: 4 INHALER MORNING/EVENING
     Route: 055
  39. SYMBICORT [Concomitant]
     Active Substance: BUDESONIDE\FORMOTEROL FUMARATE DIHYDRATE
     Indication: Rhinorrhoea
     Dosage: A PUFF IN THE AFTERNOON
     Route: 065
  40. PREDNISONE [Concomitant]
     Active Substance: PREDNISONE
     Indication: Product used for unknown indication
     Dosage: 5 MG, UNK
     Route: 065
  41. EBASTINE [Concomitant]
     Active Substance: EBASTINE
     Indication: Product used for unknown indication
     Dosage: UNK
     Route: 065
  42. CARDIZEM [Concomitant]
     Active Substance: DILTIAZEM HYDROCHLORIDE
     Indication: Product used for unknown indication
     Dosage: UNK
     Route: 065
  43. ACTONEL [Concomitant]
     Active Substance: RISEDRONATE SODIUM
     Indication: Product used for unknown indication
     Dosage: UNK
     Route: 065
  44. DILTIAZEM [Concomitant]
     Active Substance: DILTIAZEM
     Indication: Product used for unknown indication
     Dosage: UNK
     Route: 065

REACTIONS (52)
  - Nephrolithiasis [Unknown]
  - Hypertension [Not Recovered/Not Resolved]
  - Umbilical hernia [Unknown]
  - Renal colic [Unknown]
  - Fall [Unknown]
  - Pain [Unknown]
  - Aggression [Unknown]
  - Hypersensitivity [Not Recovered/Not Resolved]
  - Anxiety [Unknown]
  - Pruritus [Unknown]
  - Asthma [Unknown]
  - Body temperature decreased [Unknown]
  - Bronchospasm [Recovered/Resolved]
  - Cellulitis [Recovered/Resolved]
  - Lower respiratory tract infection [Unknown]
  - Nasopharyngitis [Recovering/Resolving]
  - Dizziness [Recovered/Resolved]
  - Therapeutic product effect decreased [Unknown]
  - Cough [Unknown]
  - Cataract [Unknown]
  - Malaise [Unknown]
  - Chest discomfort [Recovered/Resolved]
  - Headache [Recovering/Resolving]
  - Haemoglobin decreased [Unknown]
  - Arthritis infective [Unknown]
  - Animal bite [Unknown]
  - Inguinal hernia [Unknown]
  - Pruritus [Not Recovered/Not Resolved]
  - Dyspnoea [Unknown]
  - Cellulitis [Recovered/Resolved]
  - Nausea [Recovered/Resolved]
  - Panic reaction [Unknown]
  - Nightmare [Unknown]
  - Eczema [Recovered/Resolved]
  - Musculoskeletal pain [Recovering/Resolving]
  - Arthralgia [Unknown]
  - Platelet count increased [Unknown]
  - White blood cell count increased [Unknown]
  - Pneumonia [Unknown]
  - Periorbital swelling [Unknown]
  - Heart rate increased [Unknown]
  - Incorrect dose administered [Unknown]
  - Ocular hyperaemia [Unknown]
  - Rhinorrhoea [Recovering/Resolving]
  - Seasonal allergy [Unknown]
  - Skin disorder [Unknown]
  - Eye pain [Unknown]
  - Stress fracture [Recovered/Resolved]
  - Weight increased [Unknown]
  - Limb injury [Unknown]
  - Feeling hot [Recovering/Resolving]
  - Erythema [Recovering/Resolving]

NARRATIVE: CASE EVENT DATE: 20121022
